FAERS Safety Report 8832257 (Version 2)
Quarter: 2012Q4

REPORT INFORMATION
  Report Type: 
  Country: GB (occurrence: GB)
  Receive Date: 20121009
  Receipt Date: 20121014
  Transmission Date: 20130627
  Serious: Yes (Other)
  Sender: FDA-Public Use
  Company Number: GB-TEVA-361951ISR

PATIENT
  Age: 89 Year
  Sex: Female

DRUGS (8)
  1. DONEPEZIL [Suspect]
     Indication: DEMENTIA ALZHEIMER^S TYPE
     Dosage: 5 Milligram Daily;
     Dates: end: 20120712
  2. DONEPEZIL [Suspect]
     Indication: DEMENTIA ALZHEIMER^S TYPE
     Dosage: 10 Milligram Daily;
     Dates: start: 20120713, end: 20120904
  3. ASPIRIN [Concomitant]
  4. MOXONIDINE [Concomitant]
  5. LOSARTAN [Concomitant]
  6. RISEDRONATE [Concomitant]
  7. QVAR [Concomitant]
     Dosage: Two puffs twice daily
     Route: 055
  8. FUROSEMIDE [Concomitant]

REACTIONS (5)
  - Hypomania [Not Recovered/Not Resolved]
  - Energy increased [Unknown]
  - Delusion [Unknown]
  - Inappropriate affect [Unknown]
  - Insomnia [Unknown]
